FAERS Safety Report 23264379 (Version 1)
Quarter: 2023Q4

REPORT INFORMATION
  Report Type: Spontaneous
  Country: US (occurrence: US)
  Receive Date: 20231205
  Receipt Date: 20231205
  Transmission Date: 20240110
  Serious: No
  Sender: FDA-Public Use
  Company Number: US-CELLTRION INC.-2023US019558

PATIENT

DRUGS (1)
  1. TRUXIMA [Suspect]
     Active Substance: RITUXIMAB-ABBS
     Indication: Myelopathy
     Dosage: 1000 MG ONCE ON DAY ONE AND THEN 15 FOR FOUR CYCLES
     Dates: start: 20230317

REACTIONS (1)
  - Off label use [Unknown]
